FAERS Safety Report 9170865 (Version 2)
Quarter: 2013Q2

REPORT INFORMATION
  Report Type: Spontaneous
  Country: US (occurrence: US)
  Receive Date: 20130319
  Receipt Date: 20130426
  Transmission Date: 20140414
  Serious: No
  Sender: FDA-Public Use
  Company Number: US-PFIZER INC-2013089027

PATIENT
  Age: 94 Year
  Sex: Female

DRUGS (1)
  1. LIPITOR [Suspect]
     Dosage: UNK

REACTIONS (3)
  - Poor quality drug administered [Unknown]
  - Feeling abnormal [Unknown]
  - Product container seal issue [Unknown]
